FAERS Safety Report 6741930-5 (Version None)
Quarter: 2010Q2

REPORT INFORMATION
  Report Type: 
  Country: None (occurrence: None)
  Receive Date: 20100526
  Receipt Date: 20100519
  Transmission Date: 20101027
  Serious: Yes (Death, Life-Threatening)
  Sender: FDA-Public Use
  Company Number: B0649265A

PATIENT
  Age: 81 Year
  Sex: Female

DRUGS (8)
  1. TYKERB [Suspect]
     Indication: BREAST CANCER
     Dosage: 1000MG PER DAY
     Route: 048
     Dates: start: 20100113, end: 20100210
  2. XELODA [Concomitant]
     Dosage: 1200MG PER DAY
     Route: 048
     Dates: start: 20100113, end: 20100217
  3. TRUSOPT [Concomitant]
     Indication: GLAUCOMA
     Route: 047
  4. TIMOPTOL [Concomitant]
     Indication: GLAUCOMA
     Route: 047
  5. XALATAN [Concomitant]
     Indication: GLAUCOMA
     Route: 047
  6. DEPAKENE [Concomitant]
     Indication: CONVULSION PROPHYLAXIS
     Route: 048
     Dates: start: 20091221, end: 20100217
  7. RINDERON [Concomitant]
     Indication: PROPHYLAXIS
     Route: 048
     Dates: start: 20091221, end: 20100217
  8. TAGAMET [Concomitant]
     Route: 048
     Dates: start: 20091221, end: 20100217

REACTIONS (1)
  - INTERSTITIAL LUNG DISEASE [None]
